FAERS Safety Report 5479569-4 (Version None)
Quarter: 2007Q3

REPORT INFORMATION
  Report Type: 
  Country: None (occurrence: None)
  Receive Date: 20070906
  Receipt Date: 20061016
  Transmission Date: 20080115
  Serious: Yes (Other)
  Sender: FDA-Public Use
  Company Number: HQWYE232718OCT06

PATIENT
  Age: 59 Year
  Sex: Female
  Weight: 74.91 kg

DRUGS (2)
  1. ADVIL [Suspect]
     Indication: BACK PAIN
     Dosage: 4 CAPSULE 1X PER 1 DAY, ORAL
     Route: 048
     Dates: start: 20061010, end: 20061010
  2. LIPITOR [Concomitant]

REACTIONS (1)
  - URTICARIA [None]
